FAERS Safety Report 4951658-X (Version None)
Quarter: 2006Q1

REPORT INFORMATION
  Report Type: 
  Country: None (occurrence: None)
  Receive Date: 20060322
  Receipt Date: 20060322
  Transmission Date: 20060701
  Serious: Yes (Hospitalization)
  Sender: FDA-Public Use
  Company Number: None

PATIENT
  Age: 58 Year
  Sex: Male
  Weight: 88.5 kg

DRUGS (2)
  1. WARFARIN [Suspect]
     Indication: ATRIAL FLUTTER
     Dosage: 10 MG QD PO [SEVERAL YEARS]
     Route: 048
  2. AMOXICILLIN [Suspect]
     Indication: RESPIRATORY TRACT INFECTION
     Dosage: 1000 MG BID PO
     Route: 048

REACTIONS (4)
  - ANAEMIA [None]
  - INTERNATIONAL NORMALISED RATIO INCREASED [None]
  - RESPIRATORY TRACT INFECTION [None]
  - THERAPY NON-RESPONDER [None]
